FAERS Safety Report 11312944 (Version 1)
Quarter: 2015Q3

REPORT INFORMATION
  Report Type: Spontaneous
  Country: US (occurrence: US)
  Receive Date: 20150727
  Receipt Date: 20150727
  Transmission Date: 20151125
  Serious: No
  Sender: FDA-Public Use
  Company Number: US-ABBVIE-15P-163-1401343-00

PATIENT
  Sex: Female
  Weight: 80.81 kg

DRUGS (2)
  1. LEVOTHYROXINE. [Suspect]
     Active Substance: LEVOTHYROXINE
     Indication: HORMONE REPLACEMENT THERAPY
     Route: 048
     Dates: start: 2005
  2. SYNTHROID [Suspect]
     Active Substance: LEVOTHYROXINE SODIUM
     Indication: HORMONE REPLACEMENT THERAPY
     Route: 048
     Dates: start: 2005

REACTIONS (4)
  - Macular degeneration [Not Recovered/Not Resolved]
  - Chest pain [Recovered/Resolved]
  - Dry throat [Not Recovered/Not Resolved]
  - Arthropod bite [Recovered/Resolved]
